FAERS Safety Report 19389259 (Version 1)
Quarter: 2021Q2

REPORT INFORMATION
  Report Type: Spontaneous
  Country: US (occurrence: US)
  Receive Date: 20210608
  Receipt Date: 20210608
  Transmission Date: 20210717
  Serious: Yes (Hospitalization)
  Sender: FDA-Public Use
  Company Number: None

PATIENT

DRUGS (1)
  1. CISPLATIN. [Suspect]
     Active Substance: CISPLATIN
     Dates: end: 20210510

REACTIONS (6)
  - Weight decreased [None]
  - Hypophagia [None]
  - Vomiting [None]
  - Neck pain [None]
  - Malnutrition [None]
  - Nausea [None]

NARRATIVE: CASE EVENT DATE: 20210517
